FAERS Safety Report 4285620-X (Version None)
Quarter: 2004Q1

REPORT INFORMATION
  Report Type: 
  Country: None (occurrence: None)
  Receive Date: 20040202
  Receipt Date: 20040123
  Transmission Date: 20041129
  Serious: Yes (Hospitalization)
  Sender: FDA-Public Use
  Company Number: KDL064675

PATIENT
  Age: 9 Year
  Sex: Female
  Weight: 33.3 kg

DRUGS (4)
  1. PROCRIT [Suspect]
     Indication: ANAEMIA OF MALIGNANT DISEASE
     Dosage: 600 U/KG, 1 IN 1 WEEKS, IV
     Route: 042
     Dates: start: 20021122, end: 20030314
  2. TRIMETHOPRIM-SULFAMETHOXAZOLE [Concomitant]
  3. METHOTREXATE [Concomitant]
  4. ERWINIA [Concomitant]

REACTIONS (10)
  - BENIGN INTRACRANIAL HYPERTENSION [None]
  - CSF PRESSURE DECREASED [None]
  - DIPLOPIA [None]
  - DIZZINESS [None]
  - HAEMOGLOBIN DECREASED [None]
  - HEADACHE [None]
  - PAPILLOEDEMA [None]
  - VISION BLURRED [None]
  - VITH NERVE PARALYSIS [None]
  - WHITE BLOOD CELL COUNT DECREASED [None]
